FAERS Safety Report 4561371-9 (Version None)
Quarter: 2005Q1

REPORT INFORMATION
  Report Type: 
  Country: None (occurrence: None)
  Receive Date: 20050121
  Receipt Date: 20050107
  Transmission Date: 20050727
  Serious: Yes (Hospitalization, Other)
  Sender: FDA-Public Use
  Company Number: 2005008161

PATIENT
  Age: 77 Year
  Sex: Female
  Weight: 66.6788 kg

DRUGS (5)
  1. ZOLOFT [Suspect]
     Indication: DEPRESSION
     Dosage: 100 MG (100 MG, 1 IN 1 D), ORAL
     Route: 048
  2. LIPITOR [Suspect]
     Indication: BLOOD CHOLESTEROL INCREASED
     Dosage: (1 IN 1 D), ORAL
     Route: 048
     Dates: start: 20040101
  3. VICODIN [Concomitant]
  4. ALL OTHER THERAPEUTIC PRODUCTS (ALL OTHER THERAPEUTIC PRODUCTS) [Concomitant]
  5. CALCIUM (CALCIUM) [Concomitant]

REACTIONS (6)
  - ARTHRITIS [None]
  - BLOOD CHOLESTEROL INCREASED [None]
  - CHEST WALL PAIN [None]
  - FALL [None]
  - HIP FRACTURE [None]
  - PAIN IN EXTREMITY [None]
